FAERS Safety Report 24290613 (Version 1)
Quarter: 2024Q3

REPORT INFORMATION
  Report Type: Spontaneous
  Country: US (occurrence: US)
  Receive Date: 20240906
  Receipt Date: 20240906
  Transmission Date: 20241016
  Serious: No
  Sender: AMNEAL
  Company Number: US-AMNEAL PHARMACEUTICALS-2024-AMRX-02835

PATIENT
  Sex: Female

DRUGS (1)
  1. RELEUKO [Suspect]
     Active Substance: FILGRASTIM-AYOW
     Indication: Product used for unknown indication
     Dosage: 300 MCG /0.5ML SUBCUTANEOUSLY DAILY FOR 5 DAYS STARTING THE DAY AFTER CHEMO
     Route: 042

REACTIONS (1)
  - Neutrophil count [Recovered/Resolved]
